FAERS Safety Report 18414888 (Version 1)
Quarter: 2020Q4

REPORT INFORMATION
  Report Type: Spontaneous
  Country: GB (occurrence: GB)
  Receive Date: 20201022
  Receipt Date: 20201022
  Transmission Date: 20210114
  Serious: Yes (Other)
  Sender: FDA-Public Use
  Company Number: GB-TEVA-2020-GB-1839965

PATIENT
  Age: 39 Year
  Sex: Female
  Weight: 65 kg

DRUGS (3)
  1. SUMATRIPTAN. [Suspect]
     Active Substance: SUMATRIPTAN
     Dosage: AS DIRECTED, UNIT DOSE : 50 MG
     Dates: start: 20200914
  2. COLECALCIFEROL [Concomitant]
     Active Substance: CHOLECALCIFEROL
     Dosage: UNIT DOSE : 1 DOSAGE FORMS
     Dates: start: 20200826
  3. NITROFURANTOIN. [Concomitant]
     Active Substance: NITROFURANTOIN
     Dosage: UNIT DOSE : 2 DOSAGE FORMS
     Dates: start: 20200618, end: 20200623

REACTIONS (2)
  - Chest discomfort [Recovered/Resolved]
  - Vomiting [Recovered/Resolved]

NARRATIVE: CASE EVENT DATE: 20200916
